FAERS Safety Report 21129695 (Version 3)
Quarter: 2022Q3

REPORT INFORMATION
  Report Type: Report from Study
  Country: US (occurrence: US)
  Receive Date: 20220726
  Receipt Date: 20220916
  Transmission Date: 20221026
  Serious: Yes (Hospitalization, Other)
  Sender: FDA-Public Use
  Company Number: US-TAKEDA-2022TUS049339

PATIENT
  Sex: Male

DRUGS (8)
  1. TEDUGLUTIDE [Suspect]
     Active Substance: TEDUGLUTIDE
     Indication: Short-bowel syndrome
     Dosage: 5.5 MILLIGRAM, QD
     Route: 058
     Dates: start: 202206, end: 20220823
  2. TEDUGLUTIDE [Suspect]
     Active Substance: TEDUGLUTIDE
     Indication: Short-bowel syndrome
     Dosage: 5.5 MILLIGRAM, QD
     Route: 058
     Dates: start: 202206, end: 20220823
  3. TEDUGLUTIDE [Suspect]
     Active Substance: TEDUGLUTIDE
     Indication: Short-bowel syndrome
     Dosage: 5.5 MILLIGRAM, QD
     Route: 058
     Dates: start: 202206, end: 20220823
  4. TEDUGLUTIDE [Suspect]
     Active Substance: TEDUGLUTIDE
     Indication: Short-bowel syndrome
     Dosage: 5.5 MILLIGRAM, QD
     Route: 058
     Dates: start: 202206, end: 20220823
  5. TEDUGLUTIDE [Suspect]
     Active Substance: TEDUGLUTIDE
     Indication: Malnutrition
  6. TEDUGLUTIDE [Suspect]
     Active Substance: TEDUGLUTIDE
     Indication: Malnutrition
  7. TEDUGLUTIDE [Suspect]
     Active Substance: TEDUGLUTIDE
     Indication: Malnutrition
  8. TEDUGLUTIDE [Suspect]
     Active Substance: TEDUGLUTIDE
     Indication: Malnutrition

REACTIONS (10)
  - Thrombosis [Unknown]
  - Oedema peripheral [Unknown]
  - Anal incontinence [Unknown]
  - Hypervolaemia [Unknown]
  - Heart rate irregular [Unknown]
  - Dehydration [Unknown]
  - Abdominal distension [Unknown]
  - Weight decreased [Unknown]
  - Urinary tract infection [Unknown]
  - Paracentesis [Unknown]
